FAERS Safety Report 17501213 (Version 1)
Quarter: 2020Q1

REPORT INFORMATION
  Report Type: Spontaneous
  Country: US (occurrence: US)
  Receive Date: 20200224
  Receipt Date: 20200224
  Transmission Date: 20200409
  Serious: No
  Sender: FDA-Public Use
  Company Number: None

PATIENT
  Age: 69 Year
  Sex: Female

DRUGS (1)
  1. FLUPHENAZIN DEC MDV 25MG/ML [Suspect]
     Active Substance: FLUPHENAZINE DECANOATE
     Dosage: ?          OTHER FREQUENCY:OTHER;?
     Route: 030
     Dates: start: 200001

REACTIONS (3)
  - Dysarthria [None]
  - Pharyngeal disorder [None]
  - Aphasia [None]

NARRATIVE: CASE EVENT DATE: 20200224
